FAERS Safety Report 26043498 (Version 1)
Quarter: 2025Q4

REPORT INFORMATION
  Report Type: Spontaneous
  Country: US (occurrence: US)
  Receive Date: 20251113
  Receipt Date: 20251113
  Transmission Date: 20260117
  Serious: No
  Sender: NOVO NORDISK
  Company Number: US-NOVOPROD-1364322

PATIENT
  Age: 68 Year
  Sex: Female

DRUGS (2)
  1. NOVOLOG MIX 70/30 [Suspect]
     Active Substance: INSULIN ASPART
     Dosage: 60 IU, QD(TWICE A DAY 30 UNITS)
     Route: 058
  2. NOVOLOG MIX 70/30 [Suspect]
     Active Substance: INSULIN ASPART
     Indication: Type 2 diabetes mellitus
     Dosage: 36 IU, BID
     Route: 058

REACTIONS (1)
  - Laryngitis [Recovering/Resolving]

NARRATIVE: CASE EVENT DATE: 20241220
